FAERS Safety Report 10112053 (Version 2)
Quarter: 2014Q4

REPORT INFORMATION
  Report Type: Other
  Country: US (occurrence: US)
  Receive Date: 20140425
  Receipt Date: 20141231
  Transmission Date: 20150528
  Serious: Yes (Hospitalization, Other)
  Sender: FDA-Public Use
  Company Number: US-GSKPPD-2014GSK009997

PATIENT
  Age: 54 Year
  Sex: Male

DRUGS (4)
  1. TYLENOL [Concomitant]
     Active Substance: ACETAMINOPHEN
  2. AVANDIA [Suspect]
     Active Substance: ROSIGLITAZONE MALEATE
     Indication: DIABETES MELLITUS
     Dosage: AVANDIA WAS NOT LISTED AMONG THE PATIENTS RECORDS REVIEWED.
     Route: 048
  3. BUMEX [Concomitant]
     Active Substance: BUMETANIDE
     Dosage: 1 MG PER G-TUBE Q12
  4. PERCOCET [Concomitant]
     Active Substance: ACETAMINOPHEN\OXYCODONE HYDROCHLORIDE

REACTIONS (2)
  - Cardiac failure congestive [Recovered/Resolved]
  - Cerebrovascular accident [Unknown]

NARRATIVE: CASE EVENT DATE: 20051118
